FAERS Safety Report 9809066 (Version 1)
Quarter: 2014Q1

REPORT INFORMATION
  Report Type: Spontaneous
  Country: CA (occurrence: CA)
  Receive Date: 20140110
  Receipt Date: 20140110
  Transmission Date: 20141002
  Serious: Yes (Death, Life-Threatening, Hospitalization)
  Sender: FDA-Public Use
  Company Number: CA-ASTRAZENECA-2014SE01574

PATIENT
  Sex: Male

DRUGS (24)
  1. SEROQUEL [Suspect]
     Dosage: PMS-QUETIAPINE
     Route: 048
  2. SEROQUEL [Suspect]
     Route: 048
  3. SEROQUEL [Suspect]
     Route: 048
  4. RISPERIDONE [Suspect]
     Route: 065
  5. APO-LEVOCARB [Suspect]
     Dosage: 25 MG/ 100 MG
     Route: 065
  6. ACETAMINOPHEN [Concomitant]
  7. APO-DOMPERIDONE [Concomitant]
  8. APO-FLAVOXATE [Concomitant]
  9. APO-LACTULOSE [Concomitant]
     Route: 048
  10. APO-LORAZEPAM [Concomitant]
  11. APO-SALVENT [Concomitant]
  12. APO-TRAZODONE [Concomitant]
  13. APO-VALPROIC [Concomitant]
  14. ATROVENT [Concomitant]
  15. CALCIUM [Concomitant]
  16. FLOVENT [Concomitant]
  17. MILK OF MAGNESIA [Concomitant]
  18. MUCILLIUM (PLANTAGO SEED) [Concomitant]
  19. OXYGEN [Concomitant]
  20. PMS-POTASSIUM CHLORIDE [Concomitant]
  21. RATIO-LENOLTEC NO 3 [Concomitant]
  22. REMINYL ER [Concomitant]
  23. SENNOSIDES [Concomitant]
  24. THEOLAIR [Concomitant]

REACTIONS (7)
  - Anxiety [Fatal]
  - Dysphagia [Fatal]
  - Hyperhidrosis [Fatal]
  - Lung infection [Fatal]
  - Mood altered [Fatal]
  - Musculoskeletal stiffness [Fatal]
  - Rash [Fatal]
